FAERS Safety Report 19824149 (Version 1)
Quarter: 2021Q3

REPORT INFORMATION
  Report Type: Report from Study
  Country: DE (occurrence: DE)
  Receive Date: 20210913
  Receipt Date: 20210913
  Transmission Date: 20211014
  Serious: Yes (Hospitalization, Other)
  Sender: FDA-Public Use
  Company Number: DE-MYLANLABS-2021M1061231

PATIENT
  Sex: Female
  Weight: 72.4 kg

DRUGS (3)
  1. KISQALI [Suspect]
     Active Substance: RIBOCICLIB
     Dosage: 600 MILLIGRAM, QD(600 MG, QD (SCHEMA 21 DAYS INTAKE)
     Route: 048
     Dates: start: 20191113
  2. LETROZOLE. [Suspect]
     Active Substance: LETROZOLE
     Indication: BREAST CANCER METASTATIC
     Dosage: 2.5 MILLIGRAM, QD(2.5 MG, QD)
     Route: 048
     Dates: start: 20191002
  3. KISQALI [Suspect]
     Active Substance: RIBOCICLIB
     Indication: BREAST CANCER METASTATIC
     Dosage: 600 MILLIGRAM, QD(600 MG, QD (21 DAYS INTAKE)
     Route: 048
     Dates: start: 20191003, end: 20191102

REACTIONS (2)
  - Pneumonia [Recovered/Resolved]
  - Leukopenia [Recovered/Resolved]

NARRATIVE: CASE EVENT DATE: 20191030
